FAERS Safety Report 7518603-4 (Version None)
Quarter: 2011Q2

REPORT INFORMATION
  Report Type: 
  Country: None (occurrence: None)
  Receive Date: 20110602
  Receipt Date: 20110524
  Transmission Date: 20111010
  Serious: Yes (Hospitalization)
  Sender: FDA-Public Use
  Company Number: FR-KINGPHARMUSA00001-K201100640

PATIENT
  Age: 78 Year
  Sex: Male

DRUGS (9)
  1. ALTACE [Suspect]
     Dosage: 1.25 MG, BID
     Route: 048
  2. POTASSIUM CHLORIDE [Suspect]
     Dosage: 600 MG, QD
     Route: 048
  3. LASIX [Suspect]
     Dosage: 20 MG, BID
     Route: 048
  4. ESOMEPRAZOLE MAGNESIUM [Suspect]
     Dosage: 40 MG, QD
     Route: 048
     Dates: end: 20110406
  5. NOOTROPYL [Suspect]
     Dosage: 800 MG, TID
     Route: 048
     Dates: end: 20110324
  6. CORDARONE [Suspect]
     Dosage: 200 MG, UNK
     Route: 048
  7. TRIMETAZIDINE HYDROCHLORIDE [Suspect]
     Dosage: 35 MG, BID
     Route: 048
     Dates: end: 20110406
  8. AVODART [Suspect]
     Dosage: UNK
     Route: 048
  9. TRAVATAN [Concomitant]

REACTIONS (3)
  - HYPOTHYROIDISM [None]
  - HALLUCINATION, VISUAL [None]
  - AGGRESSION [None]
